FAERS Safety Report 7580796-0 (Version None)
Quarter: 2011Q2

REPORT INFORMATION
  Report Type: 
  Country: None (occurrence: None)
  Receive Date: 20110629
  Receipt Date: 20110627
  Transmission Date: 20111010
  Serious: Yes (Hospitalization, Other)
  Sender: FDA-Public Use
  Company Number: US-PFIZER INC-2011086418

PATIENT
  Sex: Male

DRUGS (5)
  1. LYRICA [Concomitant]
     Indication: NEURALGIA
     Dosage: UNK
     Dates: start: 20050101
  2. AMBIEN [Concomitant]
     Indication: INSOMNIA
     Dosage: UNK
     Dates: start: 20050101
  3. CHANTIX [Suspect]
     Indication: SMOKING CESSATION THERAPY
     Dosage: ^0.5^
     Dates: start: 20081001, end: 20090101
  4. ZOLOFT [Concomitant]
     Indication: DEPRESSION
     Dosage: UNK
     Dates: start: 20050101
  5. ZOCOR [Concomitant]
     Indication: BLOOD CHOLESTEROL
     Dosage: UNK
     Dates: start: 20070101

REACTIONS (6)
  - DEPRESSION [None]
  - SUICIDE ATTEMPT [None]
  - INTENTIONAL OVERDOSE [None]
  - MENTAL DISORDER [None]
  - ANXIETY [None]
  - INSOMNIA [None]
